FAERS Safety Report 21044459 (Version 2)
Quarter: 2022Q3

REPORT INFORMATION
  Report Type: Spontaneous
  Country: US (occurrence: US)
  Receive Date: 20220705
  Receipt Date: 20220712
  Transmission Date: 20221026
  Serious: Yes (Other)
  Sender: FDA-Public Use
  Company Number: US-BAYER-2022A089659

PATIENT
  Age: 68 Year
  Sex: Female

DRUGS (19)
  1. CIPROFLOXACIN [Suspect]
     Active Substance: CIPROFLOXACIN
     Route: 065
  2. DUOPA [Suspect]
     Active Substance: CARBIDOPA\LEVODOPA
     Indication: Parkinson^s disease
     Dosage: UNK
     Dates: start: 20220421
  3. HYDROXYCHLOROQUINE [Concomitant]
     Active Substance: HYDROXYCHLOROQUINE
     Indication: Rheumatoid arthritis
  4. ATORVASTATIN [Concomitant]
     Active Substance: ATORVASTATIN
     Indication: Blood cholesterol increased
  5. FUROSEMIDE [Concomitant]
     Active Substance: FUROSEMIDE
  6. ENALAPRIL [Concomitant]
     Active Substance: ENALAPRIL
  7. METOPROLOL [Concomitant]
     Active Substance: METOPROLOL
  8. LEVOTHYROXINE [Concomitant]
     Active Substance: LEVOTHYROXINE
  9. GLYBURIDE [Concomitant]
     Active Substance: GLYBURIDE
  10. ISOSORBIDE [Concomitant]
     Active Substance: ISOSORBIDE
  11. LEVETIRACETAM [Concomitant]
     Active Substance: LEVETIRACETAM
  12. RIVASTIGMINE [Concomitant]
     Active Substance: RIVASTIGMINE
  13. SULFASALAZINE [Concomitant]
     Active Substance: SULFASALAZINE
  14. NOURIANZ [Concomitant]
     Active Substance: ISTRADEFYLLINE
  15. LANTUS [Concomitant]
     Active Substance: INSULIN GLARGINE
  16. MELOXICAM [Concomitant]
     Active Substance: MELOXICAM
  17. GABAPENTIN [Concomitant]
     Active Substance: GABAPENTIN
  18. HYDROCODONE [Concomitant]
     Active Substance: HYDROCODONE
  19. HYDROXYZINE [Concomitant]
     Active Substance: HYDROXYZINE HYDROCHLORIDE

REACTIONS (12)
  - Hallucination [Recovering/Resolving]
  - Infection [Recovered/Resolved]
  - Memory impairment [Recovering/Resolving]
  - Device occlusion [Not Recovered/Not Resolved]
  - Diarrhoea [Unknown]
  - Stoma complication [Unknown]
  - Stoma site discharge [Recovering/Resolving]
  - Stoma site infection [Not Recovered/Not Resolved]
  - Stoma site reaction [Recovered/Resolved]
  - Stoma site erythema [Unknown]
  - Complication associated with device [Unknown]
  - Infection [Unknown]

NARRATIVE: CASE EVENT DATE: 20220101
